FAERS Safety Report 16567735 (Version 2)
Quarter: 2020Q2

REPORT INFORMATION
  Report Type: Report from Study
  Country: DE (occurrence: DE)
  Receive Date: 20190712
  Receipt Date: 20200518
  Transmission Date: 20200713
  Serious: Yes (Other)
  Sender: FDA-Public Use
  Company Number: DE-PURDUE PHARMA-GBR-2019-0063700

PATIENT
  Age: 80 Year
  Sex: Female
  Weight: 57 kg

DRUGS (2)
  1. TERIPARATIDE [Suspect]
     Active Substance: TERIPARATIDE
     Indication: OSTEOPOROSIS
     Dosage: UNK UNK, DAILY
     Route: 058
     Dates: start: 20181010
  2. MORPHINE SULFATE. [Suspect]
     Active Substance: MORPHINE SULFATE
     Indication: PRODUCT USED FOR UNKNOWN INDICATION
     Dosage: UNK
     Route: 065

REACTIONS (12)
  - Nausea [Unknown]
  - Mobility decreased [Unknown]
  - Feeling abnormal [Recovered/Resolved]
  - Weight decreased [Not Recovered/Not Resolved]
  - Fall [Recovering/Resolving]
  - Spinal fracture [Unknown]
  - Pain [Unknown]
  - Dry skin [Unknown]
  - Rash [Recovered/Resolved]
  - Headache [Unknown]
  - Pruritus [Not Recovered/Not Resolved]
  - Decreased appetite [Not Recovered/Not Resolved]

NARRATIVE: CASE EVENT DATE: 2018
